FAERS Safety Report 10230991 (Version 3)
Quarter: 2014Q2

REPORT INFORMATION
  Report Type: Spontaneous
  Country: JP (occurrence: JP)
  Receive Date: 20140611
  Receipt Date: 20140612
  Transmission Date: 20141212
  Serious: Yes (Other)
  Sender: FDA-Public Use
  Company Number: JP-PFIZER INC-2014149327

PATIENT
  Sex: 0

DRUGS (1)
  1. ALPRAZOLAM [Suspect]
     Dosage: 40 DF
     Route: 048
     Dates: start: 20140529

REACTIONS (2)
  - Overdose [Recovering/Resolving]
  - Suicide attempt [Recovering/Resolving]
